FAERS Safety Report 21160256 (Version 1)
Quarter: 2022Q3

REPORT INFORMATION
  Report Type: Spontaneous
  Country: KR (occurrence: KR)
  Receive Date: 20220802
  Receipt Date: 20220802
  Transmission Date: 20221027
  Serious: Yes (Life-Threatening, Hospitalization, Other)
  Sender: FDA-Public Use
  Company Number: KR-MLMSERVICE-20220722-3693088-1

PATIENT
  Age: 47 Year
  Sex: Female

DRUGS (2)
  1. CLOZAPINE [Suspect]
     Active Substance: CLOZAPINE
     Indication: Schizophrenia
     Dosage: HAS BEEN TAKING CLOZAPINE SINCE 2 YEARS AGO. SIX MONTHS AFTER HER LAST
  2. CLOZAPINE [Suspect]
     Active Substance: CLOZAPINE
     Indication: Schizophrenia
     Dosage: HOSPITALIZATION, SHE TOOK 100 MG OF CLOZAPINE

REACTIONS (7)
  - Salivary hypersecretion [Unknown]
  - Streptococcal infection [Recovering/Resolving]
  - Infectious pleural effusion [Recovering/Resolving]
  - Pneumothorax [Recovering/Resolving]
  - Atelectasis [Recovering/Resolving]
  - Sedation [Unknown]
  - Pleural effusion [Recovering/Resolving]
